FAERS Safety Report 21778837 (Version 2)
Quarter: 2022Q4

REPORT INFORMATION
  Report Type: Other
  Country: AM (occurrence: None)
  Receive Date: 20221226
  Receipt Date: 20221228
  Transmission Date: 20230113
  Serious: Yes (Hospitalization, Other)
  Sender: FDA-Public Use
  Company Number: AM-ROCHE-3243016

PATIENT
  Age: 62 Year
  Sex: Male

DRUGS (4)
  1. TECENTRIQ [Suspect]
     Active Substance: ATEZOLIZUMAB
     Indication: Hepatocellular carcinoma
     Dosage: NEXT INFUSION ON 18/NOV/2022 AND 12/DEC/2022
     Route: 041
     Dates: start: 20221028
  2. AVASTIN [Suspect]
     Active Substance: BEVACIZUMAB
     Indication: Hepatocellular carcinoma
     Dosage: NEXT INFUSION ON 18/NOV/2022 AND 12/DEC/2022
     Route: 042
     Dates: start: 20221028
  3. SOFOSBUVIR [Concomitant]
     Active Substance: SOFOSBUVIR
  4. VELPATASVIR [Concomitant]
     Active Substance: VELPATASVIR

REACTIONS (4)
  - Anaphylactic reaction [Recovered/Resolved]
  - Alpha 1 foetoprotein increased [Recovered/Resolved]
  - Hepatic cirrhosis [Recovered/Resolved]
  - Varices oesophageal [Recovered/Resolved]

NARRATIVE: CASE EVENT DATE: 20221212
